FAERS Safety Report 15640585 (Version 1)
Quarter: 2018Q4

REPORT INFORMATION
  Report Type: Spontaneous
  Country: RO (occurrence: RO)
  Receive Date: 20181120
  Receipt Date: 20181120
  Transmission Date: 20190205
  Serious: Yes (Other)
  Sender: FDA-Public Use
  Company Number: RO-ASTRAZENECA-2018SF52144

PATIENT
  Sex: Male

DRUGS (1)
  1. BRILIQUE [Suspect]
     Active Substance: TICAGRELOR
     Route: 048
     Dates: start: 20181112

REACTIONS (4)
  - Acute coronary syndrome [Unknown]
  - Hyperthyroidism [Unknown]
  - Diabetes mellitus [Unknown]
  - Rash [Unknown]

NARRATIVE: CASE EVENT DATE: 20181112
